FAERS Safety Report 9651243 (Version 1)
Quarter: 2013Q4

REPORT INFORMATION
  Report Type: Spontaneous
  Country: US (occurrence: US)
  Receive Date: 20131029
  Receipt Date: 20131029
  Transmission Date: 20140711
  Serious: No
  Sender: FDA-Public Use
  Company Number: US-PFIZER INC-2013306192

PATIENT
  Age: 65 Year
  Sex: Female

DRUGS (1)
  1. LIPITOR [Suspect]
     Indication: LIPIDS INCREASED
     Dosage: UNK
     Dates: start: 2008, end: 2009

REACTIONS (2)
  - Hepatic enzyme increased [Recovered/Resolved]
  - Muscle disorder [Unknown]
